FAERS Safety Report 17325124 (Version 1)
Quarter: 2020Q1

REPORT INFORMATION
  Report Type: Spontaneous
  Country: FR (occurrence: FR)
  Receive Date: 20200127
  Receipt Date: 20200127
  Transmission Date: 20200409
  Serious: Yes (Hospitalization)
  Sender: FDA-Public Use
  Company Number: FR-ACCORD-170836

PATIENT
  Age: 60 Year
  Sex: Male

DRUGS (7)
  1. APREPITANT. [Concomitant]
     Active Substance: APREPITANT
     Indication: CHEMOTHERAPY
     Dosage: 125 MG LE 26/12 PUIS 80 MG/J
     Route: 048
     Dates: start: 20191226, end: 20191228
  2. METHYLPREDNISOLONE. [Concomitant]
     Active Substance: METHYLPREDNISOLONE
     Indication: CHEMOTHERAPY
     Route: 042
     Dates: start: 20191226, end: 20191226
  3. PREDNISONE/PREDNISONE ACETATE [Concomitant]
     Active Substance: PREDNISONE ACETATE
     Indication: CHEMOTHERAPY
     Route: 048
     Dates: start: 20191227, end: 20191229
  4. FLUOROURACIL ACCORD [Suspect]
     Active Substance: FLUOROURACIL
     Indication: ADENOCARCINOMA
     Dosage: BOLUS OF 525 MG + 3150 MG IN INFUSER
     Route: 042
     Dates: start: 20191226, end: 20191226
  5. IRINOTECAN MEDAC [Suspect]
     Active Substance: IRINOTECAN
     Indication: ADENOCARCINOMA
     Dosage: STRENGTH-20 MG / ML
     Route: 042
     Dates: start: 20191226, end: 20191226
  6. ONDANSETRON/ONDANSETRON HYDROCHLORIDE [Concomitant]
     Active Substance: ONDANSETRON HYDROCHLORIDE
     Indication: CHEMOTHERAPY
     Route: 042
     Dates: start: 20191226, end: 20191226
  7. FOLINIC ACID [Concomitant]
     Active Substance: LEUCOVORIN
     Indication: CHEMOTHERAPY
     Route: 042
     Dates: start: 20191226, end: 20191226

REACTIONS (1)
  - Hepatic function abnormal [Recovered/Resolved]

NARRATIVE: CASE EVENT DATE: 20200103
